FAERS Safety Report 9387140 (Version 5)
Quarter: 2013Q3

REPORT INFORMATION
  Report Type: Spontaneous
  Country: DK (occurrence: None)
  Receive Date: 20130702
  Receipt Date: 20130905
  Transmission Date: 20140515
  Serious: Yes (Other)
  Sender: FDA-Public Use
  Company Number: AUR-APL-2013-05473

PATIENT
  Age: 41 Year
  Sex: Female

DRUGS (7)
  1. FLUCONAZOLE [Suspect]
     Indication: ANTIFUNGAL PROPHYLAXIS
     Dosage: (100 MG, 1 IN 1 D)
  2. MIRTAZAPINE [Suspect]
     Indication: PRODUCT USED FOR UNKNOWN INDICATION
  3. VINCRISTINE [Suspect]
     Indication: EWING^S SARCOMA
     Dosage: 2MG SINGLE DOSE CYCLIC
  4. ETOPOSIDE [Suspect]
     Indication: EWING^S SARCOMA
     Dosage: 900MG OVER 9 DAYS
  5. IFOSFAMIDE [Suspect]
     Indication: EWING^S SARCOMA
     Dosage: G FOR 3 DAYS, CYCLIC
  6. PREDNISOLONE [Suspect]
     Indication: EWING^S SARCOMA
  7. DOXORUBICIN HYDROCHLORIDE [Suspect]
     Indication: EWING^S SARCOMA

REACTIONS (13)
  - Neurotoxicity [None]
  - Renal impairment [None]
  - Mucosal inflammation [None]
  - Bone marrow failure [None]
  - Candida infection [None]
  - Paraesthesia [None]
  - Paraesthesia [None]
  - Drug interaction [None]
  - Drug metabolising enzyme decreased [None]
  - Motor dysfunction [None]
  - Grip strength decreased [None]
  - Inhibitory drug interaction [None]
  - Drug level increased [None]
